FAERS Safety Report 4560083-5 (Version None)
Quarter: 2005Q1

REPORT INFORMATION
  Report Type: 
  Country: None (occurrence: None)
  Receive Date: 20050120
  Receipt Date: 20050120
  Transmission Date: 20050727
  Serious: Yes (Hospitalization)
  Sender: FDA-Public Use
  Company Number: None

PATIENT
  Age: 69 Year
  Sex: Male

DRUGS (11)
  1. OMEPRAZOLE [Suspect]
     Dosage: 20 MG DAILY PO
     Route: 048
  2. FENOFIBRATE [Suspect]
     Indication: DYSLIPIDAEMIA
     Dosage: 160MG, DAILY PO
     Route: 048
  3. SIMVASTATIN [Concomitant]
  4. FISH OIL [Concomitant]
  5. MAGNESIUM [Concomitant]
  6. VITAMIN E [Concomitant]
  7. ASPIRIN [Concomitant]
  8. VITAMIN C [Concomitant]
  9. OMEPRAZOLE [Concomitant]
  10. OXAZEPAM [Concomitant]
  11. PAROXETINE [Concomitant]

REACTIONS (1)
  - PANCREATITIS ACUTE [None]
